FAERS Safety Report 9003184 (Version 2)
Quarter: 2013Q1

REPORT INFORMATION
  Report Type: Spontaneous
  Country: US (occurrence: US)
  Receive Date: 20130108
  Receipt Date: 20130221
  Transmission Date: 20140127
  Serious: Yes (Hospitalization)
  Sender: FDA-Public Use
  Company Number: US-INCYTE CORPORATION-2013IN000003

PATIENT
  Age: 66 Year
  Sex: Female
  Weight: 76.37 kg

DRUGS (23)
  1. CARBIDOPA/LEVODOPA [Concomitant]
  2. BELLADONNA EXTRACT [Concomitant]
  3. PHENOBARBITAL [Concomitant]
  4. PAXIL [Concomitant]
  5. HYDROCHLOROTHIAZIDE [Concomitant]
  6. LASIX [Concomitant]
  7. METOPROLOL [Concomitant]
  8. CARVEDILOL [Concomitant]
  9. LIPITOR [Concomitant]
  10. PRILOSEC [Concomitant]
  11. ASPIRIN [Concomitant]
  12. QUINAPRIL [Concomitant]
  13. TRAMADOL [Concomitant]
  14. ROCEPHIN [Concomitant]
     Dosage: 1 G, Q24H
  15. BLOOD THINNER [Concomitant]
  16. JAKAFI [Suspect]
     Indication: MYELOPROLIFERATIVE DISORDER
     Dosage: 20 MG, QD
     Route: 048
     Dates: start: 20120222, end: 2012
  17. JAKAFI [Suspect]
     Dosage: 20 MG, BID
     Route: 048
     Dates: start: 2012
  18. METHADONE [Suspect]
     Dosage: 10 MG, BID
     Dates: end: 20121214
  19. METHADONE [Suspect]
     Dosage: 10 MG, QAM + 5 MG, QHS (FOR A WEEK)
     Dates: start: 20121215, end: 20121215
  20. VICODIN [Concomitant]
  21. TRAZODONE [Concomitant]
  22. XANAX [Concomitant]
  23. DOXEPIN [Concomitant]

REACTIONS (7)
  - Acute myocardial infarction [Recovering/Resolving]
  - Somnolence [Recovering/Resolving]
  - Fatigue [Not Recovered/Not Resolved]
  - Hypoxia [Recovering/Resolving]
  - Fall [Recovering/Resolving]
  - Dizziness [Recovering/Resolving]
  - Arthralgia [Unknown]
